FAERS Safety Report 4843241-1 (Version None)
Quarter: 2005Q4

REPORT INFORMATION
  Report Type: 
  Country: None (occurrence: None)
  Receive Date: 20051201
  Receipt Date: 20051017
  Transmission Date: 20060501
  Serious: Yes (Hospitalization)
  Sender: FDA-Public Use
  Company Number: FR-MERCK-0510FRA00052

PATIENT
  Age: 62 Year
  Sex: Male

DRUGS (2)
  1. TRUSOPT [Suspect]
     Indication: INTRAOCULAR PRESSURE INCREASED
     Route: 047
     Dates: start: 20050629, end: 20050701
  2. TRIMETAZIDINE HYDROCHLORIDE [Concomitant]
     Indication: RETINOPATHY HYPERTENSIVE
     Route: 048

REACTIONS (3)
  - ANGLE CLOSURE GLAUCOMA [None]
  - CHOROIDAL EFFUSION [None]
  - IRIDOCYCLITIS [None]
